FAERS Safety Report 12795869 (Version 2)
Quarter: 2016Q4

REPORT INFORMATION
  Report Type: Report from Study
  Country: CA (occurrence: CA)
  Receive Date: 20160929
  Receipt Date: 20161005
  Transmission Date: 20170207
  Serious: Yes (Other)
  Sender: FDA-Public Use
  Company Number: CA-JNJFOC-20160924481

PATIENT
  Age: 37 Year
  Sex: Male

DRUGS (7)
  1. PREDNISONE. [Concomitant]
     Active Substance: PREDNISONE
     Route: 048
  2. RANITIDINE. [Concomitant]
     Active Substance: RANITIDINE
     Route: 065
  3. KEPPRA [Concomitant]
     Active Substance: LEVETIRACETAM
     Route: 065
  4. URSODIOL. [Concomitant]
     Active Substance: URSODIOL
     Route: 065
  5. PREDNISONE. [Concomitant]
     Active Substance: PREDNISONE
     Route: 048
  6. STELARA [Suspect]
     Active Substance: USTEKINUMAB
     Indication: CROHN^S DISEASE
     Dosage: LOADING DOSES
     Route: 058
     Dates: start: 20160915
  7. CLOFAZIMINE [Concomitant]
     Active Substance: CLOFAZIMINE
     Route: 065

REACTIONS (9)
  - Off label use [Unknown]
  - Somnolence [Not Recovered/Not Resolved]
  - Seizure [Recovered/Resolved]
  - Diarrhoea [Not Recovered/Not Resolved]
  - Fall [Not Recovered/Not Resolved]
  - Headache [Not Recovered/Not Resolved]
  - Back pain [Not Recovered/Not Resolved]
  - Abdominal pain upper [Not Recovered/Not Resolved]
  - Product use issue [Unknown]

NARRATIVE: CASE EVENT DATE: 201609
